FAERS Safety Report 15125391 (Version 1)
Quarter: 2018Q3

REPORT INFORMATION
  Report Type: Spontaneous
  Country: US (occurrence: US)
  Receive Date: 20180710
  Receipt Date: 20180710
  Transmission Date: 20181010
  Serious: No
  Sender: FDA-Public Use
  Company Number: US-KVK-TECH, INC-2051645

PATIENT
  Age: 42 Year
  Sex: Female

DRUGS (2)
  1. METHYLPHENIDATE HYDROCHLORIDE. [Suspect]
     Active Substance: METHYLPHENIDATE HYDROCHLORIDE
     Indication: ATTENTION DEFICIT/HYPERACTIVITY DISORDER
     Route: 048
     Dates: start: 201804, end: 201805
  2. VYFEMLA [Concomitant]
     Active Substance: ETHINYL ESTRADIOL\NORETHINDRONE
     Route: 065

REACTIONS (5)
  - Drug effect delayed [Not Recovered/Not Resolved]
  - Constipation [Not Recovered/Not Resolved]
  - Drug effect incomplete [Not Recovered/Not Resolved]
  - Drug ineffective [Not Recovered/Not Resolved]
  - Somnolence [Not Recovered/Not Resolved]

NARRATIVE: CASE EVENT DATE: 2018
